FAERS Safety Report 10134269 (Version 2)
Quarter: 2015Q1

REPORT INFORMATION
  Report Type: Other
  Country: US (occurrence: US)
  Receive Date: 20140428
  Receipt Date: 20150224
  Transmission Date: 20150720
  Serious: Yes (Hospitalization, Other)
  Sender: FDA-Public Use
  Company Number: US-GSKPPD-2014GSK037608

PATIENT
  Age: 53 Year
  Sex: Male

DRUGS (5)
  1. MAVIK [Concomitant]
     Active Substance: TRANDOLAPRIL
  2. AVANDIA [Suspect]
     Active Substance: ROSIGLITAZONE MALEATE
     Indication: DIABETES MELLITUS
     Route: 048
  3. LANOXIN [Concomitant]
     Active Substance: DIGOXIN
  4. ATENOLOL. [Concomitant]
     Active Substance: ATENOLOL
  5. ZAROXOLYN [Concomitant]
     Active Substance: METOLAZONE

REACTIONS (2)
  - Cardiac failure congestive [Recovered/Resolved]
  - Myocardial infarction [Unknown]

NARRATIVE: CASE EVENT DATE: 20030428
